FAERS Safety Report 12589966 (Version 2)
Quarter: 2016Q3

REPORT INFORMATION
  Report Type: Spontaneous
  Country: DE (occurrence: DE)
  Receive Date: 20160725
  Receipt Date: 20160801
  Transmission Date: 20161109
  Serious: Yes (Other)
  Sender: FDA-Public Use
  Company Number: GXKR2016DE003479

PATIENT
  Age: 69 Year
  Sex: Male
  Weight: 87.5 kg

DRUGS (1)
  1. AZITHROMYCIN - 1 A PHARMA [Suspect]
     Active Substance: AZITHROMYCIN DIHYDRATE
     Indication: PNEUMONIA
     Dosage: 500 MG/DAY
     Dates: start: 20160718

REACTIONS (4)
  - Pharyngeal oedema [Not Recovered/Not Resolved]
  - Tongue movement disturbance [Not Recovered/Not Resolved]
  - Palatal oedema [Not Recovered/Not Resolved]
  - Drug ineffective [Unknown]

NARRATIVE: CASE EVENT DATE: 20160718
